FAERS Safety Report 25699807 (Version 2)
Quarter: 2025Q3

REPORT INFORMATION
  Report Type: Spontaneous
  Country: EU (occurrence: EU)
  Receive Date: 20250819
  Receipt Date: 20250821
  Transmission Date: 20251020
  Serious: Yes (Life-Threatening, Hospitalization, Other)
  Sender: GILEAD
  Company Number: None

PATIENT
  Age: 59 Year

DRUGS (4)
  1. TRODELVY [Suspect]
     Active Substance: SACITUZUMAB GOVITECAN-HZIY
     Indication: Breast cancer stage IV
     Route: 042
     Dates: start: 20250626, end: 20250702
  2. DENOSUMAB [Concomitant]
     Active Substance: DENOSUMAB
  3. LASIX [Concomitant]
     Active Substance: FUROSEMIDE
  4. CANRENONE [Concomitant]
     Active Substance: CANRENONE

REACTIONS (5)
  - Diarrhoea [Unknown]
  - Vomiting [Unknown]
  - Ascites [Unknown]
  - Blood creatinine increased [Unknown]
  - Neutropenia [Unknown]

NARRATIVE: CASE EVENT DATE: 20250706
